FAERS Safety Report 5324689-8 (Version None)
Quarter: 2007Q2

REPORT INFORMATION
  Report Type: 
  Country: None (occurrence: None)
  Receive Date: 20070509
  Receipt Date: 20070125
  Transmission Date: 20071010
  Serious: Yes (Death, Life-Threatening)
  Sender: FDA-Public Use
  Company Number: TRP_00936_2007

PATIENT
  Sex: Female

DRUGS (9)
  1. AMPHOCIL / 00057502/ (AMPHOCIL/AMPHOTERICIN B CHOLESTERYL SULFATE COMP [Suspect]
     Indication: SEPTIC SHOCK
     Dosage: 120 MG  ITRAVENOUS
     Route: 042
     Dates: start: 20060902, end: 20060911
  2. COLISTIN SULFATE [Concomitant]
  3. CIPHIN [Concomitant]
  4. NORADRENALINE [Concomitant]
  5. TRAGOCID [Concomitant]
  6. MAXIPIME [Concomitant]
  7. ADRENALINE [Concomitant]
  8. PYRIDOXIN [Concomitant]
  9. THIAMIN [Concomitant]

REACTIONS (3)
  - BRONCHOSPASM [None]
  - HYPOTENSION [None]
  - OXYGEN SATURATION DECREASED [None]
